FAERS Safety Report 4382177-X (Version None)
Quarter: 2004Q2

REPORT INFORMATION
  Report Type: 
  Country: None (occurrence: None)
  Receive Date: 20040615
  Receipt Date: 20040604
  Transmission Date: 20050107
  Serious: Yes (Other)
  Sender: FDA-Public Use
  Company Number: 2004037798

PATIENT
  Age: 32 Year
  Sex: Female
  Weight: 69.8539 kg

DRUGS (1)
  1. ZOLOFT [Suspect]
     Indication: DEPRESSION
     Dosage: 200 MG, ORAL
     Route: 048

REACTIONS (5)
  - DYSGEUSIA [None]
  - GASTRIC BYPASS [None]
  - PHARMACEUTICAL PRODUCT COMPLAINT [None]
  - RETCHING [None]
  - WEIGHT DECREASED [None]
